FAERS Safety Report 25426967 (Version 1)
Quarter: 2025Q2

REPORT INFORMATION
  Report Type: Spontaneous
  Country: US (occurrence: US)
  Receive Date: 20250612
  Receipt Date: 20250612
  Transmission Date: 20250716
  Serious: No
  Sender: BRAEBURN PHARMACEUTICALS
  Company Number: 2025-0035957

PATIENT

DRUGS (1)
  1. BRIXADI [Suspect]
     Active Substance: BUPRENORPHINE
     Indication: Product used for unknown indication
     Dosage: 8 MILLIGRAM, QW
     Route: 065

REACTIONS (2)
  - Product dose omission issue [Unknown]
  - Product packaging issue [Unknown]

NARRATIVE: CASE EVENT DATE: 20250303
